FAERS Safety Report 17154329 (Version 1)
Quarter: 2019Q4

REPORT INFORMATION
  Report Type: Report from Study
  Country: US (occurrence: US)
  Receive Date: 20191213
  Receipt Date: 20191213
  Transmission Date: 20200122
  Serious: No
  Sender: FDA-Public Use
  Company Number: NVSC2019US019620

PATIENT
  Sex: Female

DRUGS (1)
  1. KISQALI FEMARA CO-PACK [Suspect]
     Active Substance: LETROZOLE\RIBOCICLIB
     Indication: BREAST MASS
     Dosage: 1 DF, QD (2.5 MG/KG(MILIGRAM/KILOGRAM))
     Route: 048

REACTIONS (3)
  - Mental disorder [Unknown]
  - Oesophageal oedema [Unknown]
  - Dehydration [Unknown]
